FAERS Safety Report 9107533 (Version 1)
Quarter: 2013Q1

REPORT INFORMATION
  Report Type: Spontaneous
  Country: US (occurrence: US)
  Receive Date: 20130221
  Receipt Date: 20130221
  Transmission Date: 20140127
  Serious: Yes (Other)
  Sender: FDA-Public Use
  Company Number: US-ASTRAZENECA-2013SE09939

PATIENT
  Age: 14 Year
  Sex: Female

DRUGS (4)
  1. PROPOFOL [Suspect]
     Route: 042
  2. SEVOFLURANE [Suspect]
  3. FRESH FROZEN PLASMA [Concomitant]
  4. PLATELET [Concomitant]

REACTIONS (1)
  - Acute promyelocytic leukaemia differentiation syndrome [Recovered/Resolved]
